FAERS Safety Report 18359803 (Version 1)
Quarter: 2020Q4

REPORT INFORMATION
  Report Type: Spontaneous
  Country: US (occurrence: US)
  Receive Date: 20201007
  Receipt Date: 20201007
  Transmission Date: 20210114
  Serious: Yes (Hospitalization, Other)
  Sender: FDA-Public Use
  Company Number: None

PATIENT
  Sex: Female

DRUGS (9)
  1. AMLODIPINE [Concomitant]
     Active Substance: AMLODIPINE BESYLATE
  2. PRAVASTATIN. [Concomitant]
     Active Substance: PRAVASTATIN
  3. SODIUM BICAR [Concomitant]
  4. AZELASTINE. [Concomitant]
     Active Substance: AZELASTINE HYDROCHLORIDE
  5. ALLOPURINOL. [Concomitant]
     Active Substance: ALLOPURINOL
  6. MONTELUKAST [Concomitant]
     Active Substance: MONTELUKAST SODIUM
  7. FLECAINIDE [Concomitant]
     Active Substance: FLECAINIDE
  8. AFINITOR [Suspect]
     Active Substance: EVEROLIMUS
     Indication: ANAEMIA
     Route: 048
     Dates: start: 20200427
  9. DILTIAZEM. [Concomitant]
     Active Substance: DILTIAZEM

REACTIONS (2)
  - Therapy interrupted [None]
  - Renal disorder [None]
